FAERS Safety Report 15922734 (Version 2)
Quarter: 2019Q1

REPORT INFORMATION
  Report Type: Spontaneous
  Country: RO (occurrence: RO)
  Receive Date: 20190206
  Receipt Date: 20190219
  Transmission Date: 20190417
  Serious: Yes (Hospitalization, Other)
  Sender: FDA-Public Use
  Company Number: RO-DRREDDYS-GER/ROM/18/0106204

PATIENT
  Age: 80 Year
  Sex: Male

DRUGS (19)
  1. ROSUVASTATIN. [Suspect]
     Active Substance: ROSUVASTATIN
     Indication: CORONARY ARTERY DISEASE
     Dosage: 20 MILLIGRAM, DAILY
     Route: 048
     Dates: start: 2016
  2. ROSUVASTATIN. [Suspect]
     Active Substance: ROSUVASTATIN
     Indication: HYPERTENSION
     Dosage: 10 UNK
  3. LERCANIDIPINE [Suspect]
     Active Substance: LERCANIDIPINE
     Dosage: 10 MILLIGRAM, DAILY
  4. RASAGILINE. [Suspect]
     Active Substance: RASAGILINE
     Indication: PARKINSON^S DISEASE
     Dosage: 1 MILLIGRAM, DAILY
     Route: 048
     Dates: start: 2017
  5. ROSUVASTATIN. [Suspect]
     Active Substance: ROSUVASTATIN
     Indication: ACUTE CORONARY SYNDROME
  6. LEVODOPA/CARBIDOPA [Suspect]
     Active Substance: CARBIDOPA\LEVODOPA
     Indication: PARKINSON^S DISEASE
     Dosage: 250 MG/ 25 MG (250 MG/ 25 MG, 1 IN 1 D)
     Route: 065
     Dates: start: 2017
  7. CLOPIDOGREL [Suspect]
     Active Substance: CLOPIDOGREL BISULFATE
     Indication: CORONARY ARTERY DISEASE
     Dosage: 75 MILLIGRAM, DAILY
     Route: 048
     Dates: start: 2016
  8. RASAGILINE. [Suspect]
     Active Substance: RASAGILINE
     Indication: HYPERTENSION
     Route: 048
  9. LEVODOPA/CARBIDOPA [Suspect]
     Active Substance: CARBIDOPA\LEVODOPA
     Dosage: 275 MG ONCE DAILY.
  10. OMEPRAZOLE. [Concomitant]
     Active Substance: OMEPRAZOLE
     Indication: PRODUCT USED FOR UNKNOWN INDICATION
     Dosage: 40 MILLIGRAM, DAILY
     Route: 065
  11. BISOPROLOL [Suspect]
     Active Substance: BISOPROLOL
     Indication: CORONARY ARTERY DISEASE
     Dosage: 5 MILLIGRAM, DAILY
     Route: 048
     Dates: start: 2016
  12. CARBIDOPA. [Suspect]
     Active Substance: CARBIDOPA
     Indication: PARKINSON^S DISEASE
     Dosage: 250 MG/ 25 MG (250 MG/ 25 MG, 1 IN 1 D)
     Route: 065
     Dates: start: 2017
  13. RIVAROXABAN [Suspect]
     Active Substance: RIVAROXABAN
     Indication: PRODUCT USED FOR UNKNOWN INDICATION
     Dosage: 20 MILLIGRAM, DAILY
     Route: 065
     Dates: start: 2016
  14. RAMIPRIL. [Suspect]
     Active Substance: RAMIPRIL
     Indication: CORONARY ARTERY DISEASE
     Dosage: 5 MILLIGRAM, DAILY
     Route: 048
     Dates: start: 2016
  15. RAMIPRIL. [Suspect]
     Active Substance: RAMIPRIL
     Indication: HYPERTENSION
  16. LERCANIDIPINE [Suspect]
     Active Substance: LERCANIDIPINE
     Indication: HYPERTENSION
     Dosage: 10 MILLIGRAM, DAILY
     Dates: start: 2012
  17. BISOPROLOL [Suspect]
     Active Substance: BISOPROLOL
     Indication: HYPERTENSION
  18. CANDESARTAN. [Suspect]
     Active Substance: CANDESARTAN
     Indication: HYPERTENSION
     Dosage: 16 MG, PER DAY
     Route: 065
     Dates: start: 2012
  19. AMIODARONE [Suspect]
     Active Substance: AMIODARONE
     Indication: ATRIAL FIBRILLATION
     Dates: start: 2015

REACTIONS (6)
  - Supine hypertension [Recovering/Resolving]
  - Intermittent claudication [Unknown]
  - Presyncope [Recovered/Resolved]
  - Dizziness [Recovered/Resolved]
  - Syncope [Recovered/Resolved with Sequelae]
  - Orthostatic hypotension [Recovered/Resolved]

NARRATIVE: CASE EVENT DATE: 2017
